FAERS Safety Report 17591487 (Version 1)
Quarter: 2020Q1

REPORT INFORMATION
  Report Type: Spontaneous
  Country: US (occurrence: US)
  Receive Date: 20200327
  Receipt Date: 20200327
  Transmission Date: 20200409
  Serious: Yes (Other)
  Sender: FDA-Public Use
  Company Number: US-ASTRAZENECA-2020SE42297

PATIENT
  Age: 699 Month
  Sex: Male
  Weight: 88.9 kg

DRUGS (1)
  1. IMFINZI [Suspect]
     Active Substance: DURVALUMAB
     Indication: NON-SMALL CELL LUNG CANCER STAGE III
     Dosage: EVERY TWO WEEKS
     Route: 042

REACTIONS (3)
  - Product dose omission [Unknown]
  - Carcinoembryonic antigen increased [Unknown]
  - Insurance issue [Unknown]

NARRATIVE: CASE EVENT DATE: 20200220
